FAERS Safety Report 8888981 (Version 3)
Quarter: 2012Q4

REPORT INFORMATION
  Report Type: 
  Country: FR (occurrence: FR)
  Receive Date: 20121106
  Receipt Date: 20121111
  Transmission Date: 20130627
  Serious: Yes (Other)
  Sender: FDA-Public Use
  Company Number: PHHO2012FR015933

PATIENT
  Age: 4 Year
  Sex: Female
  Weight: 16.7 kg

DRUGS (2)
  1. ACZ885 [Suspect]
     Indication: JUVENILE ARTHRITIS
     Dosage: 4 mg, UNK
     Route: 058
     Dates: start: 20121011, end: 20121030
  2. PREDNISONE [Concomitant]

REACTIONS (1)
  - Histiocytosis haematophagic [Unknown]
